FAERS Safety Report 8017131-X (Version None)
Quarter: 2012Q1

REPORT INFORMATION
  Report Type: 
  Country: None (occurrence: None)
  Receive Date: 20120102
  Receipt Date: 20111220
  Transmission Date: 20120608
  Serious: Yes (Other)
  Sender: FDA-Public Use
  Company Number: US-ROCHE-791970

PATIENT
  Sex: Female
  Weight: 61.29 kg

DRUGS (6)
  1. SOTRET [Suspect]
     Indication: ACNE
     Route: 065
     Dates: start: 20070801, end: 20071101
  2. AVIANE-28 [Concomitant]
     Indication: PRODUCT USED FOR UNKNOWN INDICATION
  3. AMNESTEEM [Suspect]
     Route: 065
  4. LEVAQUIN [Concomitant]
     Indication: PRODUCT USED FOR UNKNOWN INDICATION
  5. ACCUTANE [Suspect]
     Indication: ACNE
     Route: 048
     Dates: start: 20030401, end: 20030917
  6. AMNESTEEM [Suspect]
     Indication: ACNE
     Route: 065
     Dates: start: 20041201, end: 20050201

REACTIONS (8)
  - EMOTIONAL DISTRESS [None]
  - BLOOD TRIGLYCERIDES INCREASED [None]
  - COLITIS ULCERATIVE [None]
  - IRRITABLE BOWEL SYNDROME [None]
  - BLOOD CHOLESTEROL INCREASED [None]
  - LIP DRY [None]
  - INFLAMMATORY BOWEL DISEASE [None]
  - HAEMORRHOIDS [None]
